FAERS Safety Report 22709253 (Version 7)
Quarter: 2023Q4

REPORT INFORMATION
  Report Type: Spontaneous
  Country: JP (occurrence: JP)
  Receive Date: 20230717
  Receipt Date: 20231229
  Transmission Date: 20240110
  Serious: Yes (Death, Hospitalization, Other)
  Sender: FDA-Public Use
  Company Number: JP-MSD-2307JPN001135JAA

PATIENT
  Age: 70 Year
  Sex: Female

DRUGS (15)
  1. KEYTRUDA [Suspect]
     Active Substance: PEMBROLIZUMAB
     Indication: Uterine cancer
     Dosage: 200 MILLIGRAM, Q3W
     Route: 041
     Dates: start: 20221028, end: 20221028
  2. LENVATINIB MESYLATE [Suspect]
     Active Substance: LENVATINIB MESYLATE
     Indication: Uterine cancer
     Dosage: 20 MILLIGRAM, QD
     Route: 048
     Dates: start: 20221028, end: 20221110
  3. LEVOMEPROMAZINE [Concomitant]
     Active Substance: LEVOMEPROMAZINE
     Dosage: UNK
     Route: 048
  4. HALOPERIDOL [Concomitant]
     Active Substance: HALOPERIDOL
     Dosage: UNK
     Route: 048
  5. NIFEDIPINE [Concomitant]
     Active Substance: NIFEDIPINE
     Dosage: UNK
     Route: 048
  6. ARTANE [Concomitant]
     Active Substance: TRIHEXYPHENIDYL HYDROCHLORIDE
     Dosage: UNK
     Route: 048
  7. AMMONIUM GLYCYRRHIZATE\GLYCINE\RACEMETHIONINE [Concomitant]
     Active Substance: AMMONIUM GLYCYRRHIZATE\GLYCINE\RACEMETHIONINE
     Dosage: UNK
     Route: 048
  8. ROSUVASTATIN CALCIUM [Concomitant]
     Active Substance: ROSUVASTATIN CALCIUM
     Dosage: UNK
     Route: 048
  9. SENNOSIDES A AND B [Concomitant]
     Active Substance: SENNOSIDES A AND B
     Dosage: UNK
     Route: 048
  10. CERCINE [Concomitant]
     Active Substance: DIAZEPAM
     Dosage: UNK
     Route: 048
  11. EDOXABAN TOSYLATE [Concomitant]
     Active Substance: EDOXABAN TOSYLATE
     Dosage: UNK
     Route: 048
  12. LOXOPROFEN SODIUM [Concomitant]
     Active Substance: LOXOPROFEN SODIUM
     Dosage: UNK
     Route: 048
  13. NEXIUM [Concomitant]
     Active Substance: ESOMEPRAZOLE MAGNESIUM
     Dosage: UNK
     Route: 048
  14. HYDROMORPHONE HYDROCHLORIDE [Concomitant]
     Active Substance: HYDROMORPHONE HYDROCHLORIDE
     Dosage: UNK
     Route: 048
  15. HYDROMORPHONE HYDROCHLORIDE [Concomitant]
     Active Substance: HYDROMORPHONE HYDROCHLORIDE
     Dosage: UNK
     Route: 048

REACTIONS (4)
  - Pneumonia aspiration [Fatal]
  - Pneumonia bacterial [Fatal]
  - Pyrexia [Unknown]
  - Fatigue [Unknown]

NARRATIVE: CASE EVENT DATE: 20220101
